FAERS Safety Report 6656474-9 (Version None)
Quarter: 2010Q1

REPORT INFORMATION
  Report Type: 
  Country: None (occurrence: None)
  Receive Date: 20100329
  Receipt Date: 20100317
  Transmission Date: 20100710
  Serious: Yes (Hospitalization)
  Sender: FDA-Public Use
  Company Number: DE-PFIZER INC-2006012239

PATIENT
  Age: 62 Year
  Sex: Female
  Weight: 87 kg

DRUGS (5)
  1. SUNITINIB MALATE [Suspect]
     Indication: METASTATIC RENAL CELL CARCINOMA
     Dosage: 50 MG, 1X/DAY
     Route: 048
     Dates: start: 20051220
  2. NEXIUM [Concomitant]
     Route: 048
     Dates: start: 20060111
  3. LEVOTHYROXINE SODIUM [Concomitant]
     Route: 048
  4. METOCLOPRAMIDE [Concomitant]
     Route: 048
     Dates: start: 20060117
  5. OVESTIN [Concomitant]
     Route: 067
     Dates: start: 20051001

REACTIONS (1)
  - SUBILEUS [None]
